FAERS Safety Report 17885173 (Version 2)
Quarter: 2020Q3

REPORT INFORMATION
  Report Type: Spontaneous
  Country: PL (occurrence: PL)
  Receive Date: 20200611
  Receipt Date: 20200728
  Transmission Date: 20201103
  Serious: Yes (Hospitalization, Other)
  Sender: FDA-Public Use
  Company Number: PL-PFIZER INC-2020223300

PATIENT
  Age: 63 Year
  Sex: Male

DRUGS (5)
  1. CEMIPLIMAB [Suspect]
     Active Substance: CEMIPLIMAB
     Dosage: 350 MG, Q3W (EVERY 3 WEEKS)
     Route: 042
     Dates: start: 20200624
  2. PEMETREXED. [Suspect]
     Active Substance: PEMETREXED
     Indication: NON-SMALL CELL LUNG CANCER STAGE IV
     Dosage: 500 MG/M2, EVERY 3 WEEKS; CONCENTRATE FOR SOLUTION FOR INFUSION
     Route: 042
     Dates: start: 20200423, end: 20200423
  3. CEMIPLIMAB [Suspect]
     Active Substance: CEMIPLIMAB
     Indication: NON-SMALL CELL LUNG CANCER STAGE IV
     Dosage: 350 MG, EVERY 3 WEEKS
     Route: 042
     Dates: start: 20200423, end: 20200423
  4. PEMETREXED. [Suspect]
     Active Substance: PEMETREXED
     Dosage: 500 MG/M2
     Route: 042
     Dates: start: 20200624
  5. CARBOPLATIN. [Suspect]
     Active Substance: CARBOPLATIN
     Indication: NON-SMALL CELL LUNG CANCER STAGE IV
     Dosage: 5 MG/ML/MIN, EVERY 3 WEEKS; SOLUTION FOR INFUSION
     Route: 042
     Dates: start: 20200423, end: 20200423

REACTIONS (2)
  - Lung abscess [Recovered/Resolved]
  - C-reactive protein increased [Unknown]

NARRATIVE: CASE EVENT DATE: 20200513
